FAERS Safety Report 22147088 (Version 1)
Quarter: 2023Q1

REPORT INFORMATION
  Report Type: Spontaneous
  Country: CA (occurrence: CA)
  Receive Date: 20230328
  Receipt Date: 20230328
  Transmission Date: 20230417
  Serious: Yes (Other)
  Sender: FDA-Public Use
  Company Number: CA-002147023-NVSC2023CA067137

PATIENT
  Sex: Female

DRUGS (11)
  1. METHOTREXATE [Suspect]
     Active Substance: METHOTREXATE
     Indication: Oral lichen planus
     Dosage: 25 MG, QW
     Route: 065
     Dates: start: 20191125, end: 20200629
  2. CLOBETASOL [Suspect]
     Active Substance: CLOBETASOL
     Indication: Oral lichen planus
     Dosage: UNK, BID
     Route: 065
     Dates: start: 20191030, end: 20200309
  3. CYCLOSPORINE [Suspect]
     Active Substance: CYCLOSPORINE
     Indication: Oral lichen planus
     Dosage: 100 MG, BID
     Route: 065
     Dates: start: 20220203, end: 20221107
  4. LEFLUNOMIDE [Suspect]
     Active Substance: LEFLUNOMIDE
     Indication: Oral lichen planus
     Dosage: 10 MG, QD
     Route: 065
     Dates: start: 20230123, end: 20230320
  5. PREDNISONE [Suspect]
     Active Substance: PREDNISONE
     Indication: Oral lichen planus
     Dosage: 30 MG, QD (WITH TAPER)
     Route: 065
     Dates: start: 20200309, end: 20200629
  6. CELLCEPT [Suspect]
     Active Substance: MYCOPHENOLATE MOFETIL
     Indication: Oral lichen planus
     Dosage: 1 G, BID
     Route: 065
     Dates: start: 20201106, end: 20210712
  7. ELIQUIS [Concomitant]
     Active Substance: APIXABAN
     Indication: Product used for unknown indication
     Dosage: UNK
     Route: 065
  8. LEVOTHYROXINE [Concomitant]
     Active Substance: LEVOTHYROXINE
     Indication: Product used for unknown indication
     Dosage: UNK
     Route: 065
  9. BISOPROLOL [Concomitant]
     Active Substance: BISOPROLOL
     Indication: Product used for unknown indication
     Dosage: UNK
     Route: 065
  10. JAMP FER FC [Concomitant]
     Indication: Product used for unknown indication
     Dosage: UNK
     Route: 065
  11. PERINDOPRIL [Concomitant]
     Active Substance: PERINDOPRIL
     Indication: Product used for unknown indication
     Dosage: UNK
     Route: 065

REACTIONS (4)
  - Leukopenia [Not Recovered/Not Resolved]
  - Lymphopenia [Unknown]
  - Treatment failure [Unknown]
  - Drug ineffective [Unknown]
